FAERS Safety Report 9283152 (Version 1)
Quarter: 2013Q2

REPORT INFORMATION
  Report Type: Spontaneous
  Country: US (occurrence: US)
  Receive Date: 20130510
  Receipt Date: 20130510
  Transmission Date: 20140414
  Serious: No
  Sender: FDA-Public Use
  Company Number: US-GLAXOSMITHKLINE-A0983258A

PATIENT
  Age: 53 Year
  Sex: Female
  Weight: 68.2 kg

DRUGS (8)
  1. TYKERB [Suspect]
     Indication: PRODUCT USED FOR UNKNOWN INDICATION
     Dosage: 1250MG PER DAY
     Route: 048
  2. 5-HTP [Concomitant]
  3. CALCIUM [Concomitant]
  4. B COMPLEX [Concomitant]
  5. MULTIVITAMIN [Concomitant]
  6. OMEGA 3 [Concomitant]
  7. VITAMIN D3 [Concomitant]
  8. XELODA [Concomitant]

REACTIONS (4)
  - Diarrhoea [Unknown]
  - Acne [Unknown]
  - Oral pain [Unknown]
  - Fatigue [Unknown]
